FAERS Safety Report 4424245-X (Version None)
Quarter: 2004Q3

REPORT INFORMATION
  Report Type: 
  Country: None (occurrence: None)
  Receive Date: 20040810
  Receipt Date: 20040810
  Transmission Date: 20050211
  Serious: No
  Sender: FDA-Public Use
  Company Number: None

PATIENT
  Age: 34 Year
  Sex: Female

DRUGS (2)
  1. LORCET-HD [Suspect]
     Indication: PAIN
  2. LORCET-HD [Suspect]
     Indication: SPINAL DISORDER

REACTIONS (5)
  - ANXIETY [None]
  - HEART RATE IRREGULAR [None]
  - IRRITABILITY [None]
  - OEDEMA [None]
  - PHARMACEUTICAL PRODUCT COMPLAINT [None]
